FAERS Safety Report 17019280 (Version 2)
Quarter: 2019Q4

REPORT INFORMATION
  Report Type: Spontaneous
  Country: JP (occurrence: JP)
  Receive Date: 20191112
  Receipt Date: 20191120
  Transmission Date: 20200122
  Serious: Yes (Life-Threatening, Hospitalization, Other)
  Sender: FDA-Public Use
  Company Number: JP-LUPIN PHARMACEUTICALS INC.-2019-07002

PATIENT
  Age: 63 Year
  Sex: Female
  Weight: 42.8 kg

DRUGS (4)
  1. CELECOXIB. [Suspect]
     Active Substance: CELECOXIB
     Indication: BACK PAIN
     Dosage: 200 MILLIGRAM, QD
     Route: 048
     Dates: start: 201710
  2. ACETAMINOPHEN. [Concomitant]
     Active Substance: ACETAMINOPHEN
     Indication: PYREXIA
     Dosage: ONLY TAKEN AT THE DOSE OF 400 MG ONCE OR TWICE
     Route: 048
  3. ACETAMINOPHEN. [Concomitant]
     Active Substance: ACETAMINOPHEN
     Indication: CHILLS
     Dosage: 1200 MILLIGRAM, QD
     Route: 048
  4. PREGABALIN. [Suspect]
     Active Substance: PREGABALIN
     Indication: BACK PAIN
     Dosage: 25 MILLIGRAM, QD
     Route: 048
     Dates: start: 201710

REACTIONS (8)
  - Acute hepatic failure [Recovered/Resolved]
  - Drug-induced liver injury [Recovered/Resolved]
  - Acute kidney injury [Recovering/Resolving]
  - Hepatic necrosis [Recovering/Resolving]
  - Hepatitis [Recovering/Resolving]
  - Disseminated intravascular coagulation [Recovering/Resolving]
  - Pancytopenia [Recovering/Resolving]
  - Idiosyncratic drug reaction [Recovering/Resolving]

NARRATIVE: CASE EVENT DATE: 2017
